FAERS Safety Report 5410582-9 (Version None)
Quarter: 2007Q3

REPORT INFORMATION
  Report Type: 
  Country: None (occurrence: None)
  Receive Date: 20070810
  Receipt Date: 20070321
  Transmission Date: 20080115
  Serious: No
  Sender: FDA-Public Use
  Company Number: A0644682A

PATIENT
  Sex: Female

DRUGS (2)
  1. PAXIL [Suspect]
     Indication: DEPRESSION
     Dosage: 20MG PER DAY
  2. NO CONCURRENT MEDICATION [Concomitant]

REACTIONS (6)
  - DEVELOPMENTAL DELAY [None]
  - DRUG EXPOSURE DURING PREGNANCY [None]
  - HYPOTONIA [None]
  - INABILITY TO CRAWL [None]
  - PSYCHOMOTOR SKILLS IMPAIRED [None]
  - SENSORY DISTURBANCE [None]
